FAERS Safety Report 5239427-7 (Version None)
Quarter: 2007Q1

REPORT INFORMATION
  Report Type: 
  Country: None (occurrence: None)
  Receive Date: 20070216
  Receipt Date: 20070205
  Transmission Date: 20070707
  Serious: Yes (Hospitalization)
  Sender: FDA-Public Use
  Company Number: FR-AVENTIS-200710427FR

PATIENT
  Age: 49 Year
  Sex: Male

DRUGS (4)
  1. FLAGYL [Suspect]
     Route: 048
     Dates: start: 20060911, end: 20061124
  2. VACCINES [Concomitant]
     Route: 030
     Dates: start: 20060414, end: 20060414
  3. VACCINES [Concomitant]
     Route: 030
     Dates: start: 20060512, end: 20060512
  4. NEXIUM [Concomitant]
     Route: 048
     Dates: start: 20060911, end: 20061124

REACTIONS (3)
  - PAIN [None]
  - PARAESTHESIA [None]
  - PERIPHERAL SENSORY NEUROPATHY [None]
